FAERS Safety Report 10578728 (Version 3)
Quarter: 2015Q3

REPORT INFORMATION
  Report Type: Report from Study
  Country: US (occurrence: US)
  Receive Date: 20141112
  Receipt Date: 20150727
  Transmission Date: 20151125
  Serious: Yes (Hospitalization, Other)
  Sender: FDA-Public Use
  Company Number: US-SA-2014SA154311

PATIENT
  Age: 62 Year
  Sex: Male

DRUGS (2)
  1. FABRAZYME [Suspect]
     Active Substance: AGALSIDASE BETA
     Indication: FABRY^S DISEASE
     Route: 041
     Dates: start: 20030626, end: 20141007
  2. FABRAZYME [Suspect]
     Active Substance: AGALSIDASE BETA
     Indication: FABRY^S DISEASE
     Route: 041

REACTIONS (6)
  - Gout [Not Recovered/Not Resolved]
  - Localised infection [Unknown]
  - Transient ischaemic attack [Not Recovered/Not Resolved]
  - Infection [Not Recovered/Not Resolved]
  - Atrial fibrillation [Recovered/Resolved]
  - Gout [Recovered/Resolved]

NARRATIVE: CASE EVENT DATE: 20150402
